FAERS Safety Report 25615524 (Version 2)
Quarter: 2025Q4

REPORT INFORMATION
  Report Type: Report from Study
  Country: AR (occurrence: AR)
  Receive Date: 20250729
  Receipt Date: 20251030
  Transmission Date: 20260118
  Serious: No
  Sender: EMD SERONO INC
  Company Number: AR-Merck Healthcare KGaA-2025038024

PATIENT
  Age: 7 Year
  Sex: Male

DRUGS (1)
  1. SAIZEN [Suspect]
     Active Substance: SOMATROPIN
     Indication: Small for dates baby
     Dates: start: 20230417

REACTIONS (1)
  - Gastritis [Not Recovered/Not Resolved]

NARRATIVE: CASE EVENT DATE: 20250714
